FAERS Safety Report 20114390 (Version 1)
Quarter: 2021Q4

REPORT INFORMATION
  Report Type: Spontaneous
  Country: US (occurrence: US)
  Receive Date: 20211125
  Receipt Date: 20211125
  Transmission Date: 20220303
  Serious: No
  Sender: FDA-Public Use
  Company Number: US-TAKEDA-2021TUS074588

PATIENT
  Age: 19 Year
  Sex: Female

DRUGS (1)
  1. TAKHZYRO [Suspect]
     Active Substance: LANADELUMAB-FLYO
     Indication: Product used for unknown indication
     Dosage: 300 MILLIGRAM
     Route: 058
     Dates: start: 20210913

REACTIONS (1)
  - Injection site pain [Unknown]
